FAERS Safety Report 8104662-7 (Version None)
Quarter: 2012Q1

REPORT INFORMATION
  Report Type: 
  Country: None (occurrence: None)
  Receive Date: 20120130
  Receipt Date: 20120117
  Transmission Date: 20120608
  Serious: Yes (Hospitalization, Other)
  Sender: FDA-Public Use
  Company Number: PHHY2012AU005482

PATIENT
  Sex: Female

DRUGS (1)
  1. CLOZARIL [Suspect]
     Indication: SCHIZOPHRENIA
     Dates: start: 19980201, end: 19980601

REACTIONS (20)
  - HALLUCINATION, AUDITORY [None]
  - SUICIDAL IDEATION [None]
  - WEIGHT DECREASED [None]
  - HYPERKALAEMIA [None]
  - HYPERTENSION [None]
  - TYPE 2 DIABETES MELLITUS [None]
  - DYSTONIA [None]
  - MULTIMORBIDITY [None]
  - WHITE BLOOD CELL COUNT DECREASED [None]
  - AFFECTIVE DISORDER [None]
  - NEUTROPENIA [None]
  - AKATHISIA [None]
  - STRESS [None]
  - PSYCHOTIC DISORDER [None]
  - HYPOTHYROIDISM [None]
  - HALLUCINATION, VISUAL [None]
  - PANCREATIC INSUFFICIENCY [None]
  - OEDEMA PERIPHERAL [None]
  - DIARRHOEA [None]
  - HYPERCHOLESTEROLAEMIA [None]
